FAERS Safety Report 20810159 (Version 1)
Quarter: 2022Q2

REPORT INFORMATION
  Report Type: Spontaneous
  Country: US (occurrence: US)
  Receive Date: 20220510
  Receipt Date: 20220510
  Transmission Date: 20220721
  Serious: No
  Sender: FDA-Public Use
  Company Number: US-Covis Pharma GmbH-2022COV01211

PATIENT
  Sex: Male

DRUGS (2)
  1. BETAPACE AF [Suspect]
     Active Substance: SOTALOL HYDROCHLORIDE
     Indication: Arrhythmia
     Route: 048
  2. AMIODARONE [Suspect]
     Active Substance: AMIODARONE
     Indication: Product used for unknown indication

REACTIONS (1)
  - Hallucination [Unknown]
